FAERS Safety Report 14667046 (Version 1)
Quarter: 2018Q1

REPORT INFORMATION
  Report Type: Spontaneous
  Country: US (occurrence: US)
  Receive Date: 20180322
  Receipt Date: 20180322
  Transmission Date: 20180509
  Serious: No
  Sender: FDA-Public Use
  Company Number: US-ASTRAZENECA-2018SE35166

PATIENT
  Age: 29357 Day
  Sex: Male
  Weight: 85.3 kg

DRUGS (1)
  1. BYDUREON BCISE [Suspect]
     Active Substance: EXENATIDE
     Indication: DIABETES MELLITUS
     Route: 058
     Dates: start: 20180223

REACTIONS (9)
  - Weight fluctuation [Unknown]
  - Posture abnormal [Unknown]
  - Haemorrhage [Recovered/Resolved]
  - Blood glucose increased [Unknown]
  - Injection site extravasation [Unknown]
  - Nasal congestion [Unknown]
  - Vertigo [Unknown]
  - Device malfunction [Unknown]
  - Drug dose omission [Recovered/Resolved]

NARRATIVE: CASE EVENT DATE: 20180223
